FAERS Safety Report 5279797-7 (Version None)
Quarter: 2007Q1

REPORT INFORMATION
  Report Type: 
  Country: None (occurrence: None)
  Receive Date: 20061220
  Receipt Date: 20060525
  Transmission Date: 20070707
  Serious: Yes (Other)
  Sender: FDA-Public Use
  Company Number: PHEH2005US11413

PATIENT
  Age: 53 Year
  Sex: Female

DRUGS (4)
  1. AREDIA [Suspect]
     Indication: BONE NEOPLASM MALIGNANT
     Dosage: SEE IMAGE
     Dates: start: 20031201, end: 20041101
  2. AREDIA [Suspect]
     Indication: BONE NEOPLASM MALIGNANT
     Dosage: SEE IMAGE
     Dates: start: 20050101, end: 20050901
  3. ZOMETA [Suspect]
     Indication: BONE NEOPLASM MALIGNANT
     Dosage: SEE IMAGE
     Dates: start: 20041201, end: 20041201
  4. ZOMETA [Suspect]
     Indication: BONE NEOPLASM MALIGNANT
     Dosage: SEE IMAGE
     Dates: start: 20051010

REACTIONS (7)
  - ALOPECIA [None]
  - BONE PAIN [None]
  - DIZZINESS [None]
  - FATIGUE [None]
  - MALIGNANT NEOPLASM PROGRESSION [None]
  - NAUSEA [None]
  - PALPITATIONS [None]
